FAERS Safety Report 14195451 (Version 1)
Quarter: 2017Q4

REPORT INFORMATION
  Report Type: Spontaneous
  Country: US (occurrence: US)
  Receive Date: 20171116
  Receipt Date: 20171116
  Transmission Date: 20180321
  Serious: Yes (Other)
  Sender: FDA-Public Use
  Company Number: US-NOVOPROD-566649

PATIENT
  Age: 66 Year
  Sex: Female

DRUGS (2)
  1. NORDITROPIN [Suspect]
     Active Substance: SOMATROPIN
     Indication: GROWTH HORMONE DEFICIENCY
     Dosage: 1.2 MG, QD
     Route: 058
     Dates: start: 2014
  2. NORDITROPIN [Suspect]
     Active Substance: SOMATROPIN
     Dosage: DIVIDED DOSES OF 1.2 MG
     Route: 058

REACTIONS (12)
  - Blood iron decreased [Unknown]
  - Blood erythropoietin decreased [Unknown]
  - Inappropriate schedule of drug administration [Unknown]
  - Haemorrhage [Unknown]
  - Body temperature decreased [Not Recovered/Not Resolved]
  - Hypophosphataemia [Unknown]
  - Abdominal distension [Not Recovered/Not Resolved]
  - Weight increased [Not Recovered/Not Resolved]
  - Non-alcoholic steatohepatitis [Unknown]
  - Serum ferritin increased [Unknown]
  - Diabetes insipidus [Unknown]
  - Product quality issue [Unknown]

NARRATIVE: CASE EVENT DATE: 2017
